FAERS Safety Report 26139955 (Version 1)
Quarter: 2025Q4

REPORT INFORMATION
  Report Type: Spontaneous
  Country: CN (occurrence: CN)
  Receive Date: 20251210
  Receipt Date: 20251210
  Transmission Date: 20260118
  Serious: Yes (Hospitalization, Other)
  Sender: PFIZER
  Company Number: CN-PFIZER INC-PV202500144186

PATIENT
  Age: 63 Year
  Sex: Female
  Weight: 51 kg

DRUGS (2)
  1. METHOTREXATE SODIUM [Suspect]
     Active Substance: METHOTREXATE SODIUM
     Indication: Diffuse large B-cell lymphoma
     Dosage: 3 G, 1X/DAY
     Route: 041
     Dates: start: 20251114, end: 20251114
  2. LEUCOVORIN CALCIUM [Concomitant]
     Active Substance: LEUCOVORIN CALCIUM

REACTIONS (7)
  - Cardiac failure [Recovering/Resolving]
  - Nausea [Recovering/Resolving]
  - Vomiting [Recovering/Resolving]
  - Metabolic acidosis [Recovering/Resolving]
  - Condition aggravated [Recovering/Resolving]
  - Metabolic alkalosis [Recovering/Resolving]
  - Feeding disorder [Recovering/Resolving]

NARRATIVE: CASE EVENT DATE: 20251116
